FAERS Safety Report 9990375 (Version 1)
Quarter: 2014Q1

REPORT INFORMATION
  Report Type: Spontaneous
  Country: US (occurrence: None)
  Receive Date: 20140123
  Receipt Date: 20140123
  Transmission Date: 20141002
  Serious: Yes (Hospitalization)
  Sender: FDA-Public Use
  Company Number: UTC-035137

PATIENT
  Age: 34 Year
  Sex: Female
  Weight: 95.5 kg

DRUGS (4)
  1. REMODULIN [Suspect]
     Indication: PULMONARY ARTERIAL HYPERTENSION
     Dosage: 66.24 UG.KG (0.046 UG/KG , 1 IN 1 MIN) , INTRAVENOUS DRIP THERAPY 11JUN2009 TO ONGOING
     Route: 041
     Dates: start: 20090611
  2. COUMADIN (WARFARIN SODIUM) [Concomitant]
  3. REVATIO (SILDENAFIL CITRATE) [Concomitant]
  4. TRACLEER (BOSENTAN) [Concomitant]

REACTIONS (1)
  - Sepsis [None]
